FAERS Safety Report 17859951 (Version 1)
Quarter: 2020Q2

REPORT INFORMATION
  Report Type: Spontaneous
  Country: PL (occurrence: PL)
  Receive Date: 20200604
  Receipt Date: 20200604
  Transmission Date: 20200714
  Serious: Yes (Other)
  Sender: FDA-Public Use
  Company Number: NVSC2020PL147899

PATIENT
  Sex: Male

DRUGS (4)
  1. ENCORTON [Concomitant]
     Active Substance: PREDNISONE
     Indication: PRODUCT USED FOR UNKNOWN INDICATION
     Route: 065
  2. NILOTINIB [Suspect]
     Active Substance: NILOTINIB
     Indication: PRODUCT USED FOR UNKNOWN INDICATION
     Dosage: UNK (2X 400 MG/DAY)
     Route: 065
     Dates: start: 20190319, end: 20190405
  3. NILOTINIB [Suspect]
     Active Substance: NILOTINIB
     Dosage: 600 OT
     Route: 065
  4. NILOTINIB [Suspect]
     Active Substance: NILOTINIB
     Dosage: 200 OT
     Route: 065

REACTIONS (6)
  - Thrombocytopenia [Recovering/Resolving]
  - Anaemia [Recovering/Resolving]
  - Epistaxis [Unknown]
  - Splenomegaly [Unknown]
  - Chronic myeloid leukaemia [Unknown]
  - Haematotoxicity [Unknown]

NARRATIVE: CASE EVENT DATE: 20190405
